FAERS Safety Report 7580418-9 (Version None)
Quarter: 2011Q2

REPORT INFORMATION
  Report Type: 
  Country: None (occurrence: None)
  Receive Date: 20110629
  Receipt Date: 20101221
  Transmission Date: 20111010
  Serious: Yes (Death, Other)
  Sender: FDA-Public Use
  Company Number: US-BAYER-201016701NA

PATIENT
  Age: 80 Year
  Sex: Male
  Weight: 81.633 kg

DRUGS (30)
  1. LASIX [Concomitant]
     Dosage: 40 MG, UNK
     Route: 048
     Dates: start: 20040424
  2. ZOFRAN [Concomitant]
     Dosage: UNK
     Route: 042
     Dates: start: 20051223
  3. EPHEDRINE [Concomitant]
     Dosage: UNK
     Route: 042
     Dates: start: 20051223
  4. PROTAMINE SULFATE [Concomitant]
     Dosage: UNK
     Route: 042
     Dates: start: 20051223
  5. RED BLOOD CELLS [Concomitant]
     Dosage: 3 U, UNK
     Route: 042
     Dates: start: 20051223
  6. HEPARIN [Concomitant]
     Dosage: UNK
     Route: 042
     Dates: start: 20051223
  7. PEPCID [Concomitant]
     Dosage: UNK
     Route: 042
     Dates: start: 20051223
  8. NOREPINEPHRINE BITARTRATE [Concomitant]
     Dosage: UNK
     Route: 042
     Dates: start: 20051223
  9. SPIRONOLACTONE [Concomitant]
     Dosage: 25 MG, UNK
     Dates: start: 20040424
  10. LANOXIN [Concomitant]
     Dosage: 0.25 MG, UNK
     Dates: start: 20040424
  11. SIMVASTATIN [Concomitant]
     Route: 048
  12. ESMOLOL [Concomitant]
     Dosage: UNK
     Route: 042
     Dates: start: 20051223
  13. CLONIDINE [Concomitant]
     Route: 048
  14. METOPROLOL TARTRATE [Concomitant]
     Route: 048
  15. TRASYLOL [Suspect]
     Indication: AORTIC SURGERY
     Route: 042
     Dates: start: 20051223
  16. PROPOFOL [Concomitant]
     Dosage: UNK
     Route: 042
     Dates: start: 20051223
  17. DOPAMINE HCL [Concomitant]
     Dosage: UNK
     Route: 042
     Dates: start: 20051223
  18. VERSED [Concomitant]
     Dosage: UNK
     Route: 042
     Dates: start: 20051223
  19. FENTANYL [Concomitant]
     Dosage: UNK
     Route: 042
     Dates: start: 20051223
  20. ANCEF [Concomitant]
     Dosage: UNK
     Route: 042
     Dates: start: 20051223
  21. ACETYLSALICYLIC ACID SRT [Concomitant]
     Route: 048
  22. ALDACTONE [Concomitant]
     Route: 048
  23. COREG [Concomitant]
     Route: 048
  24. SODIUM NITROPRUSSIDE [Concomitant]
     Route: 048
  25. ALBUMIN (HUMAN) [Concomitant]
     Dosage: 1000 UNITS UNSPECIFIED
     Route: 042
     Dates: start: 20051223
  26. INSULIN [Concomitant]
     Route: 058
  27. PROTONIX [Concomitant]
     Route: 048
  28. LISINOPRIL [Concomitant]
     Dosage: 10 MG, UNK
     Route: 048
     Dates: start: 20040424
  29. LASIX [Concomitant]
     Dosage: UNK
     Route: 042
     Dates: start: 20051223
  30. LIDOCAINE [Concomitant]
     Dosage: UNK
     Route: 042
     Dates: start: 20051223

REACTIONS (4)
  - RENAL FAILURE [None]
  - PAIN [None]
  - DEATH [None]
  - INJURY [None]
